FAERS Safety Report 9104340 (Version 4)
Quarter: 2015Q3

REPORT INFORMATION
  Report Type: Spontaneous
  Country: FI (occurrence: FI)
  Receive Date: 20130219
  Receipt Date: 20150807
  Transmission Date: 20151125
  Serious: Yes (Other)
  Sender: FDA-Public Use
  Company Number: FI-UCBSA-078328

PATIENT
  Age: 0 Year
  Sex: Male
  Weight: 2.22 kg

DRUGS (33)
  1. HYDANTIN [Concomitant]
     Active Substance: PHENYTOIN
     Indication: PRODUCT USED FOR UNKNOWN INDICATION
     Dosage: UNKNOWN DOSE
     Route: 064
     Dates: start: 20120814, end: 20120910
  2. SOMAC [Concomitant]
     Active Substance: PANTOPRAZOLE SODIUM
     Indication: PROPHYLAXIS
     Dosage: UNKNOWN DOSE
     Route: 064
     Dates: start: 20120729, end: 20120814
  3. LACOSAMIDE [Suspect]
     Active Substance: LACOSAMIDE
     Indication: STATUS EPILEPTICUS
     Dosage: 150 MG, 2X/DAY (BID)
     Route: 064
     Dates: start: 201207, end: 201207
  4. ENOXAPARIN [Suspect]
     Active Substance: ENOXAPARIN
     Indication: THROMBOSIS
     Dosage: 40 MG, 2X/DAY (BID)
     Route: 064
     Dates: start: 20120729
  5. MIDAZOLAM [Concomitant]
     Active Substance: MIDAZOLAM\MIDAZOLAM HYDROCHLORIDE
     Indication: PRODUCT USED FOR UNKNOWN INDICATION
     Dosage: UNKNOWN DOSE
     Route: 064
  6. HEPARIN [Concomitant]
     Active Substance: HEPARIN SODIUM
     Indication: INTRACRANIAL VENOUS SINUS THROMBOSIS
     Dosage: UNKNOWN DOSE
     Route: 064
     Dates: start: 20120728, end: 20120729
  7. PROPOFOL. [Concomitant]
     Active Substance: PROPOFOL
     Indication: PRODUCT USED FOR UNKNOWN INDICATION
     Dosage: UNKNOWN DOSE
     Route: 064
  8. PROPOFOL. [Concomitant]
     Active Substance: PROPOFOL
     Dosage: UNKNOWN DOSE
     Route: 063
  9. LORAZEPAM. [Concomitant]
     Active Substance: LORAZEPAM
     Indication: MYOCLONUS
     Dosage: 6 MG
  10. KEPPRA [Suspect]
     Active Substance: LEVETIRACETAM
     Indication: STATUS EPILEPTICUS
     Dosage: 1000 MG
     Route: 064
  11. KEPPRA [Suspect]
     Active Substance: LEVETIRACETAM
     Dosage: 1000 MG, 2X/DAY (BID)
     Route: 064
     Dates: start: 20120729
  12. LACOSAMIDE [Suspect]
     Active Substance: LACOSAMIDE
     Dosage: UNKNOWN DOSE
     Route: 063
  13. KLEXANE [Concomitant]
     Active Substance: ENOXAPARIN
     Dosage: 40 MG, 2X/DAY (BID)
     Route: 063
     Dates: start: 20130206, end: 201302
  14. LACOSAMIDE [Suspect]
     Active Substance: LACOSAMIDE
     Dosage: 100 MG, 2X/DAY (BID)
     Route: 064
     Dates: start: 20120730
  15. FOLVITE [Concomitant]
     Active Substance: FOLIC ACID
     Indication: HIGH RISK PREGNANCY
     Dosage: 4 MG, ONCE DAILY (QD)
     Route: 064
     Dates: start: 20120816, end: 20130206
  16. BIOPHILUS [Concomitant]
     Indication: PROPHYLAXIS
     Dosage: UNKNOWN DOSE
     Route: 064
     Dates: start: 20120820, end: 20120824
  17. KEPPRA [Suspect]
     Active Substance: LEVETIRACETAM
     Dosage: UNKNOWN DOSE
     Route: 063
  18. ALBETOL [Concomitant]
     Dosage: 100 MG, 2X/DAY (BID)
     Route: 063
     Dates: start: 20130206, end: 201302
  19. CEFTRIAXONE. [Concomitant]
     Active Substance: CEFTRIAXONE
     Indication: PNEUMONIA
     Dosage: UNKNOWN DOSE
     Route: 064
  20. KEPPRA [Suspect]
     Active Substance: LEVETIRACETAM
     Indication: OFF LABEL USE
     Dosage: 3000 MG
     Route: 064
  21. ALBETOL [Concomitant]
     Indication: HYPERTENSION
     Dosage: 100 MG, 2X/DAY (BID)
     Route: 064
     Dates: start: 20120817, end: 20130206
  22. ENOXAPARIN [Suspect]
     Active Substance: ENOXAPARIN
     Indication: HAEMORRHAGE INTRACRANIAL
     Dosage: 60 MG, 2X/DAY (BID)
     Route: 064
  23. FOLVITE [Concomitant]
     Active Substance: FOLIC ACID
     Dosage: 4 MG, ONCE DAILY (QD)
     Route: 063
     Dates: start: 20130206, end: 201302
  24. PROPRANOLOL [Concomitant]
     Active Substance: PROPRANOLOL\PROPRANOLOL HYDROCHLORIDE
     Indication: IRON DEFICIENCY ANAEMIA
     Dosage: UNKNOWN DOSE
     Route: 064
     Dates: start: 20120815, end: 20120903
  25. PRO-EPANUTIN [Concomitant]
     Active Substance: FOSPHENYTOIN\FOSPHENYTOIN SODIUM
     Dosage: 250 MG, 2X/DAY (BID)
     Route: 064
     Dates: start: 20120729, end: 20120814
  26. TAZOCIN [Concomitant]
     Active Substance: PIPERACILLIN SODIUM\TAZOBACTAM SODIUM
     Indication: PNEUMONIA
     Dosage: UNKNOWN DOSE
     Route: 064
     Dates: end: 20120830
  27. AMOXIN COMP [Concomitant]
     Indication: PNEUMONIA
     Dosage: UNKNOWN DOSE
     Route: 064
     Dates: start: 20120820, end: 20120828
  28. ENOXAPARIN [Suspect]
     Active Substance: ENOXAPARIN
     Dosage: UNKNOWN DOSE
     Route: 063
  29. KLEXANE [Concomitant]
     Active Substance: ENOXAPARIN
     Indication: INTRACRANIAL VENOUS SINUS THROMBOSIS
     Dosage: 40 MG, 2X/DAY (BID)
     Route: 064
     Dates: start: 20120729, end: 20130206
  30. PHENYTOINE [Concomitant]
     Active Substance: PHENYTOIN
     Route: 064
  31. STESOLID [Concomitant]
     Active Substance: DIAZEPAM
     Indication: SEIZURE
     Dosage: 10 MG
     Route: 064
  32. ATIVAN [Concomitant]
     Active Substance: LORAZEPAM
     Indication: PRODUCT USED FOR UNKNOWN INDICATION
     Dosage: UNKNOWN DOSE
     Route: 064
  33. PRO-EPANUTIN [Concomitant]
     Active Substance: FOSPHENYTOIN\FOSPHENYTOIN SODIUM
     Indication: MYOCLONUS
     Dosage: 600 MG
     Route: 064

REACTIONS (6)
  - Off label use [Unknown]
  - Somnolence [Unknown]
  - Feeding disorder [Unknown]
  - Foetal exposure during pregnancy [Recovered/Resolved]
  - Exposure during breast feeding [Recovered/Resolved]
  - Premature baby [Recovered/Resolved]

NARRATIVE: CASE EVENT DATE: 201207
